FAERS Safety Report 7036188-6 (Version None)
Quarter: 2010Q4

REPORT INFORMATION
  Report Type: 
  Country: None (occurrence: None)
  Receive Date: 20101008
  Receipt Date: 20100726
  Transmission Date: 20110411
  Serious: No
  Sender: FDA-Public Use
  Company Number: US-BRISTOL-MYERS SQUIBB COMPANY-15205263

PATIENT
  Age: 45 Year
  Sex: Male

DRUGS (1)
  1. AVAPRO [Suspect]
     Indication: BLOOD PRESSURE INCREASED
     Dosage: STARTED 6-7 YRS AGO

REACTIONS (2)
  - DIZZINESS [None]
  - RENAL PAIN [None]
